FAERS Safety Report 19287301 (Version 1)
Quarter: 2021Q2

REPORT INFORMATION
  Report Type: Spontaneous
  Country: US (occurrence: US)
  Receive Date: 20210521
  Receipt Date: 20210521
  Transmission Date: 20210717
  Serious: Yes (Hospitalization, Other)
  Sender: FDA-Public Use
  Company Number: US-SA-2021SA156627

PATIENT
  Age: 55 Year
  Sex: Male

DRUGS (4)
  1. GEMCITABINE HYDROCHLORIDE. [Suspect]
     Active Substance: GEMCITABINE HYDROCHLORIDE
     Indication: SOFT TISSUE SARCOMA
     Dosage: 900 MG/M2, QCY ON DAY 1 AND 8
     Route: 042
     Dates: start: 20160802, end: 20160802
  2. GEMCITABINE HYDROCHLORIDE. [Suspect]
     Active Substance: GEMCITABINE HYDROCHLORIDE
     Dosage: 900 MG/M2, QCY ON DAY 1 AND 8
     Route: 042
     Dates: start: 20160809, end: 20160809
  3. DOCETAXEL. [Suspect]
     Active Substance: DOCETAXEL
     Dosage: 75 MG/M2, QCY, DAY 8
     Route: 042
     Dates: start: 20160809, end: 20160809
  4. DOCETAXEL. [Suspect]
     Active Substance: DOCETAXEL
     Indication: SOFT TISSUE SARCOMA
     Dosage: 75 MG/M2, QCY, DAY 8
     Route: 042
     Dates: start: 20160802, end: 20160802

REACTIONS (8)
  - Oropharyngeal pain [Unknown]
  - Nausea [Unknown]
  - Dyspnoea [Unknown]
  - Bacteraemia [Recovered/Resolved]
  - Pyrexia [Unknown]
  - Cough [Unknown]
  - Febrile neutropenia [Recovered/Resolved]
  - Chills [Unknown]

NARRATIVE: CASE EVENT DATE: 20160815
